FAERS Safety Report 11121954 (Version 1)
Quarter: 2015Q2

REPORT INFORMATION
  Report Type: Spontaneous
  Country: US (occurrence: US)
  Receive Date: 20150519
  Receipt Date: 20150519
  Transmission Date: 20150821
  Serious: Yes (Life-Threatening)
  Sender: FDA-Public Use
  Company Number: PHEH2015US009205

PATIENT
  Sex: Female

DRUGS (2)
  1. ZYKADIA [Suspect]
     Active Substance: CERITINIB
     Dosage: 4 (2 IN MORNING AND 2 IN EVENING)
     Route: 048
  2. ZYKADIA [Suspect]
     Active Substance: CERITINIB
     Indication: LUNG NEOPLASM MALIGNANT
     Dosage: 5 PILLS ONCE DAILY
     Route: 048

REACTIONS (9)
  - Chest pain [Unknown]
  - Neck pain [Unknown]
  - Contusion [Unknown]
  - Eating disorder [Unknown]
  - Feeling abnormal [Unknown]
  - Ear pain [Unknown]
  - Rash [Unknown]
  - Myalgia [Unknown]
  - Dyspnoea [Unknown]
